FAERS Safety Report 23351181 (Version 1)
Quarter: 2023Q4

REPORT INFORMATION
  Report Type: Spontaneous
  Country: BR (occurrence: None)
  Receive Date: 20231229
  Receipt Date: 20231229
  Transmission Date: 20240109
  Serious: Yes (Hospitalization)
  Sender: FDA-Public Use
  Company Number: BR-ROCHE-3482623

PATIENT
  Sex: Female
  Weight: 57 kg

DRUGS (2)
  1. ALECENSA [Suspect]
     Active Substance: ALECTINIB HYDROCHLORIDE
     Indication: Lung neoplasm malignant
     Dosage: 8 CAPSULES
     Route: 065
     Dates: start: 2019
  2. OSCAL D [Concomitant]
     Active Substance: CALCIUM CARBONATE\CHOLECALCIFEROL
     Dosage: 500 MG+ 400 UI D,  2 TABLETS

REACTIONS (1)
  - Thyroid mass [Recovered/Resolved]

NARRATIVE: CASE EVENT DATE: 20190101
